FAERS Safety Report 7217058-7 (Version None)
Quarter: 2010Q4

REPORT INFORMATION
  Report Type: 
  Country: None (occurrence: None)
  Receive Date: 20101230
  Receipt Date: 20101214
  Transmission Date: 20110411
  Serious: Yes (Death)
  Sender: FDA-Public Use
  Company Number: JPI-P-013256

PATIENT
  Age: 63 Year
  Sex: Female

DRUGS (6)
  1. XYREM [Suspect]
     Indication: INSOMNIA
     Dosage: 9 GM (4.5 GM,2 IN 1 D),ORAL
     Route: 048
     Dates: start: 20100519
  2. DULOXETINE HYDROCHLORIDE [Concomitant]
  3. QUETIAPINE FUMARATE [Concomitant]
  4. GAMMA-AMINOBUTYRIC ACID [Concomitant]
  5. DIVALPROEX SODIUM [Concomitant]
  6. UNSPECIFIED PAIN MEDICATIONS [Concomitant]

REACTIONS (2)
  - DIARRHOEA [None]
  - SEDATION [None]
